FAERS Safety Report 8207352-5 (Version None)
Quarter: 2012Q1

REPORT INFORMATION
  Report Type: 
  Country: None (occurrence: None)
  Receive Date: 20120314
  Receipt Date: 20120119
  Transmission Date: 20120608
  Serious: No
  Sender: FDA-Public Use
  Company Number: US-GLAXOSMITHKLINE-A0962148A

PATIENT
  Age: 65 Year
  Sex: Male

DRUGS (2)
  1. NICORETTE (MINT) [Suspect]
     Indication: EX-TOBACCO USER
     Dates: start: 20120111, end: 20120116
  2. NICORETTE [Suspect]
     Indication: EX-TOBACCO USER

REACTIONS (4)
  - INSOMNIA [None]
  - BURNING SENSATION [None]
  - DRUG INEFFECTIVE [None]
  - THROAT IRRITATION [None]
